FAERS Safety Report 7813016-X (Version None)
Quarter: 2011Q4

REPORT INFORMATION
  Report Type: 
  Country: None (occurrence: None)
  Receive Date: 20111013
  Receipt Date: 20111005
  Transmission Date: 20120403
  Serious: Yes (Disabling, Other)
  Sender: FDA-Public Use
  Company Number: ES-BAYER-2011-096062

PATIENT
  Age: 76 Year
  Sex: Male

DRUGS (8)
  1. FLUTICASONE PROPIONATE/SALMETEROL [Concomitant]
     Indication: EMPHYSEMA
     Dosage: UNK
  2. SPIRIVA [Concomitant]
     Dosage: UNK
  3. LANACORDIN [Concomitant]
     Dosage: UNK UNK, QD
  4. CANDESARTAN CILEXETIL AND HYDROCHLOROTHIAZIDE [Concomitant]
     Indication: HYPERTENSION
     Dosage: 16 MG, QD
  5. PANTOPRAZOLE [Concomitant]
     Indication: PROPHYLAXIS
     Dosage: 40 MG, QD
  6. DABIGATRAN [Concomitant]
     Indication: ANTICOAGULANT THERAPY
     Dosage: 75 MG, UNK
  7. LANTANON [Concomitant]
     Indication: DEPRESSION
     Dosage: 30 MG, QD
  8. MOXIFLOXACIN [Suspect]
     Indication: PROPHYLAXIS
     Dosage: 1 DF, QD
     Route: 048
     Dates: start: 20110915, end: 20110919

REACTIONS (7)
  - RASH [None]
  - MYOPIA [None]
  - ASTIGMATISM [None]
  - FATIGUE [None]
  - CHEST DISCOMFORT [None]
  - DEAFNESS [None]
  - EAR DISCOMFORT [None]
